FAERS Safety Report 23975870 (Version 1)
Quarter: 2024Q2

REPORT INFORMATION
  Report Type: Report from Study
  Country: IN (occurrence: None)
  Receive Date: 20240614
  Receipt Date: 20240614
  Transmission Date: 20240716
  Serious: Yes (Death)
  Sender: FDA-Public Use
  Company Number: 2024A136114

PATIENT
  Age: 61 Year
  Sex: Female

DRUGS (1)
  1. TAGRISSO [Suspect]
     Active Substance: OSIMERTINIB
     Indication: Metastasis
     Route: 048

REACTIONS (2)
  - Vomiting [Fatal]
  - Asthenia [Fatal]
